FAERS Safety Report 24670183 (Version 1)
Quarter: 2024Q4

REPORT INFORMATION
  Report Type: Spontaneous
  Country: US (occurrence: US)
  Receive Date: 20241127
  Receipt Date: 20241127
  Transmission Date: 20250114
  Serious: Yes (Other)
  Sender: GLAND PHARMA LTD
  Company Number: US-GLANDPHARMA-US-2024GLNSPO01098

PATIENT
  Sex: Male
  Weight: 63.5 kg

DRUGS (13)
  1. VANCOMYCIN HYDROCHLORIDE [Suspect]
     Active Substance: VANCOMYCIN HYDROCHLORIDE
     Indication: Product used for unknown indication
     Route: 042
  2. DAYTRANA [Concomitant]
     Active Substance: METHYLPHENIDATE
     Indication: Attention deficit hyperactivity disorder
     Route: 062
     Dates: start: 202404
  3. DAYTRANA [Concomitant]
     Active Substance: METHYLPHENIDATE
     Route: 062
     Dates: start: 202405
  4. DAYTRANA [Concomitant]
     Active Substance: METHYLPHENIDATE
     Route: 062
     Dates: start: 202405
  5. DAYTRANA [Concomitant]
     Active Substance: METHYLPHENIDATE
     Route: 062
     Dates: start: 202410
  6. FOCALIN [Concomitant]
     Active Substance: DEXMETHYLPHENIDATE HYDROCHLORIDE
     Indication: Product used for unknown indication
     Route: 048
  7. FOCALIN [Concomitant]
     Active Substance: DEXMETHYLPHENIDATE HYDROCHLORIDE
     Route: 048
  8. OMEPRAZOLE [Concomitant]
     Active Substance: OMEPRAZOLE
     Indication: Product used for unknown indication
     Route: 042
  9. AMINO ACIDS\CARBOHYDRATES\MINERALS\VITAMINS [Concomitant]
     Active Substance: AMINO ACIDS\CARBOHYDRATES\MINERALS\VITAMINS
     Indication: Product used for unknown indication
     Route: 065
  10. IRON [Concomitant]
     Active Substance: IRON
     Indication: Product used for unknown indication
     Route: 065
  11. VITAMINS [Concomitant]
     Active Substance: VITAMINS
     Indication: Product used for unknown indication
     Route: 065
  12. FAMOTIDINE [Concomitant]
     Active Substance: FAMOTIDINE
     Indication: Product used for unknown indication
     Route: 065
  13. STRATTERA [Concomitant]
     Active Substance: ATOMOXETINE HYDROCHLORIDE
     Indication: Anxiety
     Route: 065

REACTIONS (1)
  - Vancomycin infusion reaction [Recovered/Resolved]
